FAERS Safety Report 9803170 (Version 1)
Quarter: 2014Q1

REPORT INFORMATION
  Report Type: Spontaneous
  Country: US (occurrence: None)
  Receive Date: 20140107
  Receipt Date: 20140107
  Transmission Date: 20141002
  Serious: Yes (Disabling)
  Sender: FDA-Public Use
  Company Number: None

PATIENT
  Age: 60 Year
  Sex: Female
  Weight: 58.06 kg

DRUGS (1)
  1. BOTOX [Suspect]
     Indication: MIGRAINE
     Dosage: ONE TIME ONLY  GIVEN INTO/UNDER THE SKIN
     Route: 058
     Dates: start: 20131115

REACTIONS (6)
  - Migraine [None]
  - Neck pain [None]
  - Paralysis [None]
  - Activities of daily living impaired [None]
  - Dysphonia [None]
  - Laryngitis [None]
